FAERS Safety Report 19728829 (Version 6)
Quarter: 2022Q2

REPORT INFORMATION
  Report Type: Report from Study
  Country: GB (occurrence: GB)
  Receive Date: 20210820
  Receipt Date: 20220531
  Transmission Date: 20220721
  Serious: Yes (Hospitalization, Other)
  Sender: FDA-Public Use
  Company Number: GB-PFIZER INC-202101041113

PATIENT
  Age: 22 Year
  Sex: Female
  Weight: 72 kg

DRUGS (11)
  1. TOZINAMERAN [Suspect]
     Active Substance: TOZINAMERAN
     Indication: COVID-19 immunisation
     Dosage: DOSE 2, SINGLE
     Route: 030
     Dates: start: 20210628, end: 20210628
  2. TOZINAMERAN [Suspect]
     Active Substance: TOZINAMERAN
     Indication: COVID-19 immunisation
     Dosage: DOSE 2, SINGLE
     Route: 030
     Dates: start: 20210628, end: 20210628
  3. PLACEBO [Suspect]
     Active Substance: UNSPECIFIED INGREDIENT
     Indication: COVID-19 immunisation
     Dosage: DOSE 2, SINGLE
     Route: 030
     Dates: start: 20210628, end: 20210628
  4. TOZINAMERAN [Suspect]
     Active Substance: TOZINAMERAN
     Dosage: DOSE 1, SINGLE
     Route: 030
     Dates: start: 20210607, end: 20210607
  5. TOZINAMERAN [Suspect]
     Active Substance: TOZINAMERAN
     Dosage: DOSE 1, SINGLE
     Route: 030
     Dates: start: 20210607, end: 20210607
  6. PLACEBO [Suspect]
     Active Substance: UNSPECIFIED INGREDIENT
     Dosage: DOSE 1, SINGLE
     Route: 030
     Dates: start: 20210607, end: 20210607
  7. DINOPROSTONE [Concomitant]
     Active Substance: DINOPROSTONE
     Indication: Labour induction
     Dosage: 2MG, ONCE
     Route: 067
     Dates: start: 20210716, end: 20210718
  8. ACETAMINOPHEN [Concomitant]
     Active Substance: ACETAMINOPHEN
     Indication: Analgesic therapy
     Dosage: 1 G, SINGLE
     Route: 048
     Dates: start: 20210715, end: 20210720
  9. PENICILLIN G [Concomitant]
     Active Substance: PENICILLIN G
     Indication: Prolonged rupture of membranes
     Dosage: 2.4 G, ONCE
     Route: 042
     Dates: start: 20210718, end: 20210718
  10. SYNTOCINON [Concomitant]
     Active Substance: OXYTOCIN
     Indication: Labour induction
     Dosage: 10 IU, ONCE
     Route: 042
     Dates: start: 20210718, end: 20210718
  11. SYNTOMETRINE [ERGOMETRINE;OXYTOCIN] [Concomitant]
     Indication: Prolonged labour
     Dosage: ONCE
     Route: 030
     Dates: start: 20210718, end: 20210718

REACTIONS (2)
  - Maternal exposure during pregnancy [Recovered/Resolved]
  - Postpartum haemorrhage [Recovered/Resolved]

NARRATIVE: CASE EVENT DATE: 20210607
